FAERS Safety Report 5922389-4 (Version None)
Quarter: 2008Q4

REPORT INFORMATION
  Report Type: 
  Country: None (occurrence: None)
  Receive Date: 20081017
  Receipt Date: 20081010
  Transmission Date: 20090506
  Serious: Yes (Hospitalization)
  Sender: FDA-Public Use
  Company Number: SE-GENENTECH-269687

PATIENT
  Sex: Male

DRUGS (2)
  1. RAPTIVA [Suspect]
     Indication: PSORIASIS
     Dosage: 0.5 ML, SINGLE
     Dates: start: 20080301, end: 20080601
  2. RAPTIVA [Suspect]
     Dosage: 0.7 ML, 1/WEEK
     Dates: end: 20080601

REACTIONS (2)
  - ANGIOEDEMA [None]
  - ILEUS [None]
